FAERS Safety Report 7658938-8 (Version None)
Quarter: 2011Q3

REPORT INFORMATION
  Report Type: 
  Country: None (occurrence: None)
  Receive Date: 20110805
  Receipt Date: 20110803
  Transmission Date: 20111222
  Serious: Yes (Hospitalization)
  Sender: FDA-Public Use
  Company Number: US-PFIZER INC-2011177747

PATIENT
  Sex: Male
  Weight: 79 kg

DRUGS (1)
  1. NARDIL [Suspect]
     Dosage: 15 MG, 2X/DAY

REACTIONS (2)
  - ARTHRITIS [None]
  - JOINT SURGERY [None]
